FAERS Safety Report 17078898 (Version 1)
Quarter: 2019Q4

REPORT INFORMATION
  Report Type: Report from Study
  Country: US (occurrence: US)
  Receive Date: 20191127
  Receipt Date: 20191127
  Transmission Date: 20200122
  Serious: Yes (Other)
  Sender: FDA-Public Use
  Company Number: US-ASTELLAS-2019US041953

PATIENT
  Age: 92 Year
  Sex: Male

DRUGS (2)
  1. ENZALUTAMIDE [Suspect]
     Active Substance: ENZALUTAMIDE
     Route: 048
     Dates: start: 20191019
  2. ENZALUTAMIDE [Suspect]
     Active Substance: ENZALUTAMIDE
     Indication: PROSTATE CANCER
     Route: 048
     Dates: start: 20190515, end: 20191018

REACTIONS (4)
  - Dizziness [Unknown]
  - Product dose omission [Unknown]
  - Gait disturbance [Unknown]
  - Product availability issue [Unknown]

NARRATIVE: CASE EVENT DATE: 20191018
